FAERS Safety Report 8594662-5 (Version None)
Quarter: 2012Q3

REPORT INFORMATION
  Report Type: 
  Country: None (occurrence: None)
  Receive Date: 20120815
  Receipt Date: 20120807
  Transmission Date: 20120928
  Serious: Yes (Hospitalization)
  Sender: FDA-Public Use
  Company Number: US-PFIZER INC-2012192289

PATIENT
  Age: 67 Year
  Sex: Female
  Weight: 72.562 kg

DRUGS (8)
  1. VALIUM [Concomitant]
     Indication: MUSCLE SPASMS
     Dosage: 5 MG, 3X/DAY
     Dates: start: 20120101
  2. LYRICA [Suspect]
     Indication: MUSCLE SPASMS
  3. GABAPENTIN [Suspect]
     Dosage: UNK
  4. ZANAFLEX [Suspect]
     Indication: MUSCLE SPASMS
     Dosage: 5 MG, 4X/DAY
     Dates: start: 20120630, end: 20120802
  5. LYRICA [Suspect]
     Indication: POLYNEUROPATHY
  6. NORVASC [Suspect]
  7. LYRICA [Suspect]
     Indication: MYELITIS TRANSVERSE
     Dosage: 50 MG, 3X/DAY
     Dates: start: 20120630
  8. LYRICA [Suspect]
     Indication: HYPOAESTHESIA

REACTIONS (2)
  - BLOOD PRESSURE DECREASED [None]
  - DRUG INEFFECTIVE [None]
